FAERS Safety Report 9755809 (Version 1)
Quarter: 2013Q4

REPORT INFORMATION
  Report Type: Spontaneous
  Country: US (occurrence: US)
  Receive Date: 20131213
  Receipt Date: 20131213
  Transmission Date: 20140711
  Serious: No
  Sender: FDA-Public Use
  Company Number: US-GLAXOSMITHKLINE-A1024645A

PATIENT
  Age: 68 Year
  Sex: Female
  Weight: 77 kg

DRUGS (2)
  1. EQUATE NTS 7MG, CLEAR [Suspect]
     Indication: EX-TOBACCO USER
     Dates: start: 20130513, end: 20130520
  2. PLAVIX [Concomitant]

REACTIONS (1)
  - Pruritus generalised [Recovered/Resolved]
